FAERS Safety Report 9982026 (Version 1)
Quarter: 2014Q1

REPORT INFORMATION
  Report Type: Spontaneous
  Country: US (occurrence: None)
  Receive Date: 20140306
  Receipt Date: 20140306
  Transmission Date: 20141002
  Serious: Yes (Life-Threatening, Hospitalization)
  Sender: FDA-Public Use
  Company Number: None

PATIENT
  Age: 91 Year
  Sex: Male
  Weight: 79.1 kg

DRUGS (3)
  1. LISINOPRIL [Suspect]
     Indication: HYPERTENSION
     Dosage: MG PO
     Route: 048
     Dates: start: 20120706, end: 20140116
  2. LISINOPRIL [Suspect]
     Indication: DIABETES MELLITUS
     Dosage: MG PO
     Route: 048
     Dates: start: 20120706, end: 20140116
  3. LISINOPRIL [Suspect]
     Indication: CORONARY ARTERY DISEASE
     Dosage: MG PO
     Route: 048
     Dates: start: 20120706, end: 20140116

REACTIONS (5)
  - Swollen tongue [None]
  - Tongue disorder [None]
  - Pharyngeal oedema [None]
  - Anaphylactic reaction [None]
  - Angioedema [None]
